FAERS Safety Report 4607985-9 (Version None)
Quarter: 2005Q2

REPORT INFORMATION
  Report Type: 
  Country: None (occurrence: None)
  Receive Date: 20050303
  Receipt Date: 20041108
  Transmission Date: 20051028
  Serious: No
  Sender: FDA-Public Use
  Company Number: 210294

PATIENT
  Age: 49 Year
  Sex: Female

DRUGS (4)
  1. XOLAIR [Suspect]
     Dosage: Q4W
     Dates: start: 20040816
  2. ADVAIR (FLUTICASONE PROPIONATE, SALMETEROL XINAFOATE) [Concomitant]
  3. RHINOCORT [Concomitant]
  4. PNEUMONIA SHOT (PNEUMOCOCCAL VACCINE) [Concomitant]

REACTIONS (1)
  - PRURITUS [None]
